FAERS Safety Report 9888964 (Version 1)
Quarter: 2014Q1

REPORT INFORMATION
  Report Type: Spontaneous
  Country: US (occurrence: US)
  Receive Date: 20140211
  Receipt Date: 20140211
  Transmission Date: 20141002
  Serious: No
  Sender: FDA-Public Use
  Company Number: US-BAXTER-2014BAX005510

PATIENT
  Sex: Female

DRUGS (3)
  1. 0.9% SODIUM CHLORIDE INJECTION [Suspect]
     Indication: PRODUCT USED FOR UNKNOWN INDICATION
     Route: 042
  2. PERJETA [Suspect]
     Indication: CHEMOTHERAPY
     Dosage: 192-298 CC
     Route: 042
  3. PERJETA [Suspect]
     Indication: BREAST CANCER

REACTIONS (3)
  - Device leakage [Unknown]
  - Infusion site extravasation [Unknown]
  - Accidental exposure to product [Unknown]
